FAERS Safety Report 4325619-8 (Version None)
Quarter: 2004Q1

REPORT INFORMATION
  Report Type: 
  Country: None (occurrence: None)
  Receive Date: 20040324
  Receipt Date: 20040312
  Transmission Date: 20041129
  Serious: Yes (Other)
  Sender: FDA-Public Use
  Company Number: GB-JNJFOC-20040302960

PATIENT
  Sex: Male

DRUGS (1)
  1. RISPERDAL CONSTA [Suspect]
     Indication: SCHIZOPHRENIA
     Dosage: INTRA-MUSCULAR
     Route: 030
     Dates: start: 20031101

REACTIONS (4)
  - HAEMORRHAGE [None]
  - NEOPLASM MALIGNANT [None]
  - TONSILLAR DISORDER [None]
  - ULCER [None]
